FAERS Safety Report 6306031-9 (Version None)
Quarter: 2009Q3

REPORT INFORMATION
  Report Type: 
  Country: None (occurrence: None)
  Receive Date: 20090812
  Receipt Date: 20090810
  Transmission Date: 20100115
  Serious: Yes (Death)
  Sender: FDA-Public Use
  Company Number: US-PURDUE-USA-2009-0038838

PATIENT
  Sex: Male

DRUGS (6)
  1. TRAMADOL HCL [Suspect]
     Indication: ARTHRALGIA
  2. OXYCODONE HYDROCHLORIDE [Suspect]
     Indication: DRUG USE FOR UNKNOWN INDICATION
  3. HYDROCODONE [Suspect]
     Indication: ARTHRALGIA
  4. COCAINE [Suspect]
     Indication: DRUG ABUSE
  5. ALPRAZOLAM [Suspect]
     Indication: DRUG USE FOR UNKNOWN INDICATION
  6. DIAZEPAM [Suspect]
     Indication: DRUG USE FOR UNKNOWN INDICATION

REACTIONS (2)
  - CARDIAC DISORDER [None]
  - SUBSTANCE ABUSE [None]
